FAERS Safety Report 11732359 (Version 2)
Quarter: 2015Q4

REPORT INFORMATION
  Report Type: Report from Study
  Country: US (occurrence: US)
  Receive Date: 20151113
  Receipt Date: 20151125
  Transmission Date: 20160304
  Serious: Yes (Other)
  Sender: FDA-Public Use
  Company Number: US-AMGEN-USASL2015117969

PATIENT
  Age: 44 Year
  Sex: Male

DRUGS (1)
  1. ENBREL [Suspect]
     Active Substance: ETANERCEPT
     Indication: ANKYLOSING SPONDYLITIS
     Dosage: UNK
     Route: 065

REACTIONS (10)
  - Dysuria [Unknown]
  - Erectile dysfunction [Unknown]
  - Urinary tract infection [Unknown]
  - Psoriasis [Unknown]
  - Haematospermia [Unknown]
  - Dry skin [Unknown]
  - Blindness transient [Unknown]
  - Skin ulcer [Unknown]
  - Skin fissures [Unknown]
  - Cerebral disorder [Unknown]
